FAERS Safety Report 4716919-8 (Version None)
Quarter: 2005Q3

REPORT INFORMATION
  Report Type: 
  Country: None (occurrence: None)
  Receive Date: 20050714
  Receipt Date: 20050630
  Transmission Date: 20060218
  Serious: Yes (Other)
  Sender: FDA-Public Use
  Company Number: 2005-0008426

PATIENT
  Age: 41 Year
  Sex: Male
  Weight: 59.4212 kg

DRUGS (8)
  1. VIREAD [Suspect]
     Indication: HIV INFECTION
     Dosage: 300 MG, 1 IN 1 D ORAL
     Route: 048
     Dates: start: 20020215, end: 20050323
  2. EPIVIR [Concomitant]
  3. KALETRA [Concomitant]
  4. BACTRIM DS [Concomitant]
  5. NEURONTIN [Concomitant]
  6. ANDROGEL [Concomitant]
  7. FELDENE [Concomitant]
  8. FLAXSEED OIL (LINUM USITATISSIMUM SEED OIL) [Concomitant]

REACTIONS (12)
  - ARTHRALGIA [None]
  - ASTHENIA [None]
  - BALANCE DISORDER [None]
  - BLOOD ALKALINE PHOSPHATASE INCREASED [None]
  - CARBON DIOXIDE DECREASED [None]
  - CONDITION AGGRAVATED [None]
  - CREATININE RENAL CLEARANCE DECREASED [None]
  - DIFFICULTY IN WALKING [None]
  - DRUG INEFFECTIVE [None]
  - GLYCOSURIA [None]
  - PAIN IN EXTREMITY [None]
  - PROTEINURIA [None]
